FAERS Safety Report 18526978 (Version 1)
Quarter: 2020Q4

REPORT INFORMATION
  Report Type: Spontaneous
  Country: US (occurrence: US)
  Receive Date: 20201119
  Receipt Date: 20201119
  Transmission Date: 20210114
  Serious: Yes (Hospitalization)
  Sender: FDA-Public Use
  Company Number: None

PATIENT
  Age: 75 Year
  Sex: Female
  Weight: 88.8 kg

DRUGS (10)
  1. GEMCITABINE HYDROCHLORIDE. [Suspect]
     Active Substance: GEMCITABINE HYDROCHLORIDE
     Dates: end: 20201027
  2. GLIMERPIRIDE [Concomitant]
     Active Substance: GLIMEPIRIDE
  3. TRADJENTA [Concomitant]
     Active Substance: LINAGLIPTIN
  4. LISINOPRIL. [Concomitant]
     Active Substance: LISINOPRIL
  5. APIXABAN [Concomitant]
     Active Substance: APIXABAN
  6. CISPLATIN. [Suspect]
     Active Substance: CISPLATIN
     Dates: end: 20201027
  7. PACLITAXEL PROTEIN-BOUND PARTICLES (ALBUMIN-BOUND) [Suspect]
     Active Substance: PACLITAXEL
     Dates: end: 20201027
  8. METFORMIN [Concomitant]
     Active Substance: METFORMIN HYDROCHLORIDE
  9. MORPHINE [Concomitant]
     Active Substance: MORPHINE
  10. LEVOTHYROXINE. [Concomitant]
     Active Substance: LEVOTHYROXINE

REACTIONS (5)
  - Febrile neutropenia [None]
  - Bacteraemia [None]
  - Gastrointestinal haemorrhage [None]
  - Thrombocytopenia [None]
  - Gastrointestinal toxicity [None]

NARRATIVE: CASE EVENT DATE: 20201102
